FAERS Safety Report 24105951 (Version 1)
Quarter: 2024Q3

REPORT INFORMATION
  Report Type: Spontaneous
  Country: US (occurrence: None)
  Receive Date: 20240716
  Receipt Date: 20240716
  Transmission Date: 20241017
  Serious: No
  Sender: Public
  Company Number: None

PATIENT
  Age: 76 Year
  Sex: Male

DRUGS (1)
  1. FUROSCIX [Suspect]
     Active Substance: FUROSEMIDE

REACTIONS (3)
  - Dizziness [None]
  - Feeling abnormal [None]
  - Injection site bruising [None]

NARRATIVE: CASE EVENT DATE: 20240701
